FAERS Safety Report 5860206-1 (Version None)
Quarter: 2008Q3

REPORT INFORMATION
  Report Type: 
  Country: None (occurrence: None)
  Receive Date: 20080818
  Receipt Date: 20080707
  Transmission Date: 20090109
  Serious: No
  Sender: FDA-Public Use
  Company Number: WAES 0807USA01181

PATIENT
  Age: 67 Year
  Sex: Female

DRUGS (8)
  1. JANUVIA [Suspect]
     Indication: TYPE 2 DIABETES MELLITUS
     Dosage: 50 MG/DAILY/PO
     Route: 048
  2. AMARYL [Concomitant]
  3. COREG [Concomitant]
  4. COUMADIN [Concomitant]
  5. LASIX [Concomitant]
  6. LIPITOR [Concomitant]
  7. DIGOXIN [Concomitant]
  8. INSULIN [Concomitant]

REACTIONS (1)
  - OEDEMA PERIPHERAL [None]
